FAERS Safety Report 8443580-1 (Version None)
Quarter: 2012Q2

REPORT INFORMATION
  Report Type: 
  Country: None (occurrence: None)
  Receive Date: 20120618
  Receipt Date: 20120612
  Transmission Date: 20120825
  Serious: No
  Sender: FDA-Public Use
  Company Number: US-PFIZER INC-2012142214

PATIENT
  Sex: Male

DRUGS (4)
  1. LEVODOPA [Suspect]
     Dosage: UNK
  2. LYRICA [Suspect]
     Indication: PROCEDURAL PAIN
     Dosage: UNK
  3. COMTAN [Suspect]
     Dosage: UNK
  4. WELLBUTRIN [Suspect]
     Dosage: UNK

REACTIONS (3)
  - DIZZINESS [None]
  - FATIGUE [None]
  - CONFUSIONAL STATE [None]
